FAERS Safety Report 5594298-4 (Version None)
Quarter: 2008Q1

REPORT INFORMATION
  Report Type: 
  Country: None (occurrence: None)
  Receive Date: 20080117
  Receipt Date: 20080109
  Transmission Date: 20080703
  Serious: Yes (Other)
  Sender: FDA-Public Use
  Company Number: PHNU2008DE00506

PATIENT
  Sex: Male

DRUGS (5)
  1. EXELON [Suspect]
     Dosage: 4.6 MG/24 HR PATCH, BID
     Route: 062
     Dates: start: 20070101, end: 20070101
  2. EXELON [Suspect]
     Dosage: 9.5 MG/24 HR PATCH
     Route: 062
     Dates: start: 20070101
  3. EXELON [Suspect]
     Dosage: 9 MG/DAY
     Route: 048
     Dates: end: 20070101
  4. EXELON [Suspect]
     Dosage: 9 MG/DAY
     Route: 048
  5. REMINYL [Concomitant]
     Dosage: UNKNOWN
     Route: 048

REACTIONS (3)
  - APPLICATION SITE ERYTHEMA [None]
  - FATIGUE [None]
  - OESOPHAGEAL ULCER [None]
